FAERS Safety Report 9481921 (Version 2)
Quarter: 2013Q4

REPORT INFORMATION
  Report Type: Spontaneous
  Country: US (occurrence: None)
  Receive Date: 20130823
  Receipt Date: 20131015
  Transmission Date: 20140711
  Serious: Yes (Hospitalization, Other)
  Sender: FDA-Public Use
  Company Number: AUR-APL-2013-06867

PATIENT
  Age: 70 Year
  Sex: Female
  Weight: 72.5 kg

DRUGS (3)
  1. LISINOPRIL [Suspect]
     Indication: HYPERTENSION
     Dates: start: 2013
  2. LYRICA (PREGABALIN) [Suspect]
     Indication: NEURALGIA
     Dosage: 300 MG (150 MG, 2 IN 1 D), ORAL
     Route: 048
     Dates: start: 2012
  3. PROPRANOLOL [Suspect]
     Indication: HYPERTENSION
     Dates: start: 2013

REACTIONS (5)
  - Myocardial infarction [None]
  - Blood pressure increased [None]
  - Blood glucose increased [None]
  - Sedation [None]
  - Drug abuse [None]
